FAERS Safety Report 8921008 (Version 3)
Quarter: 2014Q3

REPORT INFORMATION
  Report Type: Spontaneous
  Country: US (occurrence: US)
  Receive Date: 20121121
  Receipt Date: 20140711
  Transmission Date: 20150326
  Serious: Yes (Death, Hospitalization, Other)
  Sender: FDA-Public Use
  Company Number: US-SANOFI-AVENTIS-2012SA084077

PATIENT
  Age: 68 Year
  Sex: Male
  Weight: 138.5 kg

DRUGS (10)
  1. NADOLOL. [Concomitant]
     Active Substance: NADOLOL
  2. ROPINIROLE. [Concomitant]
     Active Substance: ROPINIROLE
     Route: 048
  3. MULTAQ [Suspect]
     Active Substance: DRONEDARONE
     Indication: ATRIAL FIBRILLATION
     Route: 048
     Dates: start: 20111214, end: 201207
  4. SPIRONOLACTONE. [Concomitant]
     Active Substance: SPIRONOLACTONE
     Route: 048
  5. LOVASTATIN. [Concomitant]
     Active Substance: LOVASTATIN
     Route: 048
  6. LACTULOSE. [Concomitant]
     Active Substance: LACTULOSE
     Route: 048
  7. LASIX [Concomitant]
     Active Substance: FUROSEMIDE
     Route: 048
  8. ALBUTEROL. [Concomitant]
     Active Substance: ALBUTEROL
  9. BACLOFEN. [Concomitant]
     Active Substance: BACLOFEN
     Route: 048
  10. CODEINE [Concomitant]
     Active Substance: CODEINE

REACTIONS (10)
  - Multi-organ failure [Fatal]
  - Mental status changes [Fatal]
  - Urine output decreased [Not Recovered/Not Resolved]
  - Hepatic vein thrombosis [Unknown]
  - Transplant failure [Unknown]
  - Hepatic failure [Unknown]
  - Renal failure acute [Not Recovered/Not Resolved]
  - Sepsis [Unknown]
  - Hypoxia [Fatal]
  - Post procedural complication [Fatal]

NARRATIVE: CASE EVENT DATE: 2012
